FAERS Safety Report 12118201 (Version 2)
Quarter: 2016Q1

REPORT INFORMATION
  Report Type: Spontaneous
  Country: BR (occurrence: BR)
  Receive Date: 20160226
  Receipt Date: 20160323
  Transmission Date: 20160526
  Serious: Yes (Hospitalization)
  Sender: FDA-Public Use
  Company Number: BR-TORRENT-00003070

PATIENT
  Age: 38 Year
  Sex: Female
  Weight: 68 kg

DRUGS (3)
  1. STELAZINE [Concomitant]
     Active Substance: TRIFLUOPERAZINE HYDROCHLORIDE
     Indication: HALLUCINATION, AUDITORY
     Dosage: ONCE DAILY/ORAL
     Route: 048
  2. PHENERGAN [Concomitant]
     Active Substance: PROMETHAZINE HYDROCHLORIDE
     Indication: PRODUCT USED FOR UNKNOWN INDICATION
     Dosage: TWICE DAILY/ ORAL
     Route: 048
     Dates: start: 201504
  3. RESPIDON [Suspect]
     Active Substance: RISPERIDONE
     Indication: HALLUCINATION, AUDITORY
     Dosage: RESPIDON 1 MG NINE TIMES DAILY (3 TABLETS IN THE MORNING, 3 AT NOON AND 3 AT NIGHT)/ ORAL
     Route: 048
     Dates: start: 201504, end: 201602

REACTIONS (4)
  - Abdominal distension [Recovered/Resolved]
  - Hallucination, auditory [Not Recovered/Not Resolved]
  - Drug ineffective [Recovered/Resolved]
  - Weight increased [Recovered/Resolved]

NARRATIVE: CASE EVENT DATE: 201504
